FAERS Safety Report 18133612 (Version 3)
Quarter: 2021Q4

REPORT INFORMATION
  Report Type: Report from Study
  Country: JP (occurrence: JP)
  Receive Date: 20200811
  Receipt Date: 20211116
  Transmission Date: 20220303
  Serious: Yes (Death, Other)
  Sender: FDA-Public Use
  Company Number: JP-OTSUKA-2019_042935

PATIENT
  Age: 67 Year
  Sex: Male
  Weight: 63.2 kg

DRUGS (1)
  1. PONATINIB [Suspect]
     Active Substance: PONATINIB
     Indication: Chronic myeloid leukaemia transformation
     Dosage: 15 MILLIGRAM, QD
     Route: 048
     Dates: start: 20180522, end: 20180919

REACTIONS (2)
  - Chronic myeloid leukaemia transformation [Fatal]
  - Blood pressure increased [Recovering/Resolving]

NARRATIVE: CASE EVENT DATE: 20180612
